FAERS Safety Report 8613739-9 (Version None)
Quarter: 2012Q3

REPORT INFORMATION
  Report Type: 
  Country: None (occurrence: None)
  Receive Date: 20120823
  Receipt Date: 20120815
  Transmission Date: 20120928
  Serious: No
  Sender: FDA-Public Use
  Company Number: US-BIOGENIDEC-2012BI031878

PATIENT
  Age: 60 Year
  Sex: Female

DRUGS (5)
  1. LYRICA [Concomitant]
     Indication: CONVULSION
  2. KEPPRA [Concomitant]
     Indication: CONVULSION
  3. LAMICTAL [Concomitant]
     Indication: CONVULSION
  4. ATENOLOL [Concomitant]
     Indication: HYPERTENSION
  5. TYSABRI [Suspect]
     Indication: MULTIPLE SCLEROSIS
     Route: 042
     Dates: start: 20110101

REACTIONS (9)
  - HEMIPARESIS [None]
  - HEADACHE [None]
  - MEMORY IMPAIRMENT [None]
  - PARAESTHESIA [None]
  - MUSCULOSKELETAL STIFFNESS [None]
  - VISUAL IMPAIRMENT [None]
  - BLINDNESS TRANSIENT [None]
  - MULTIPLE SCLEROSIS RELAPSE [None]
  - PAIN [None]
